FAERS Safety Report 17436008 (Version 1)
Quarter: 2020Q1

REPORT INFORMATION
  Report Type: Spontaneous
  Country: US (occurrence: US)
  Receive Date: 20200219
  Receipt Date: 20200219
  Transmission Date: 20200409
  Serious: Yes (Hospitalization, Other)
  Sender: FDA-Public Use
  Company Number: US-009507513-2002USA005827

PATIENT
  Age: 33 Year
  Sex: Female
  Weight: 88 kg

DRUGS (1)
  1. NEXPLANON [Suspect]
     Active Substance: ETONOGESTREL
     Indication: UTERINE HAEMORRHAGE
     Dosage: 1 DOSAGE FORM
     Route: 059
     Dates: start: 20160818

REACTIONS (3)
  - Cellulitis [Not Recovered/Not Resolved]
  - Incorrect product administration duration [Unknown]
  - Product use in unapproved indication [Unknown]

NARRATIVE: CASE EVENT DATE: 20160818
